FAERS Safety Report 8866774 (Version 1)
Quarter: 2012Q4

REPORT INFORMATION
  Report Type: 
  Country: US (occurrence: US)
  Receive Date: 20121025
  Receipt Date: 20121025
  Transmission Date: 20130627
  Serious: Yes (Other)
  Sender: FDA-Public Use
  Company Number: US-AMGEN-USASP2012013310

PATIENT
  Age: 63 Year
  Sex: Male
  Weight: 65.76 kg

DRUGS (3)
  1. ENBREL [Suspect]
     Indication: PRODUCT USED FOR UNKNOWN INDICATION
     Dosage: 50 mg, qwk
     Route: 058
  2. ASPIRIN [Concomitant]
     Dosage: 81 mg, UNK
  3. VITAMIN D /00107901/ [Concomitant]
     Dosage: 1000 IU, UNK

REACTIONS (1)
  - Bacterial infection [Recovered/Resolved]
